FAERS Safety Report 23566486 (Version 1)
Quarter: 2024Q1

REPORT INFORMATION
  Report Type: Spontaneous
  Country: US (occurrence: US)
  Receive Date: 20240226
  Receipt Date: 20240226
  Transmission Date: 20240409
  Serious: No
  Sender: FDA-Public Use
  Company Number: US-AMNEAL PHARMACEUTICALS-2023-AMRX-00237

PATIENT
  Sex: Female
  Weight: 79.365 kg

DRUGS (2)
  1. RYTARY [Suspect]
     Active Substance: CARBIDOPA\LEVODOPA
     Indication: Product used for unknown indication
     Dosage: 48.75/195 MG/MG, 5 TIMES IN DAY
     Route: 048
  2. RYTARY [Suspect]
     Active Substance: CARBIDOPA\LEVODOPA
     Dosage: 48.75/195 MG TAKE 2 CAPSULES BY MOUTH 5 TIMES PER DAY
     Route: 048

REACTIONS (2)
  - COVID-19 [Unknown]
  - Drug ineffective [Unknown]
